FAERS Safety Report 10496350 (Version 2)
Quarter: 2014Q4

REPORT INFORMATION
  Report Type: Spontaneous
  Country: US (occurrence: US)
  Receive Date: 20141003
  Receipt Date: 20141003
  Transmission Date: 20150528
  Serious: No
  Sender: FDA-Public Use
  Company Number: US-ASTRAZENECA-2013SE82561

PATIENT
  Age: 73 Year
  Sex: Female
  Weight: 67.1 kg

DRUGS (9)
  1. FOSAMAX [Concomitant]
     Active Substance: ALENDRONATE SODIUM
     Indication: OSTEOPOROSIS
     Dates: end: 201304
  2. COREG [Concomitant]
     Active Substance: CARVEDILOL
     Dosage: 10MG
     Dates: start: 2008
  3. CRESTOR [Suspect]
     Active Substance: ROSUVASTATIN CALCIUM
     Indication: BLOOD CHOLESTEROL INCREASED
     Route: 048
     Dates: start: 2008
  4. CALCIUM [Concomitant]
     Active Substance: CALCIUM
  5. COENZYME Q10 [Concomitant]
     Active Substance: UBIDECARENONE
     Dates: start: 2008
  6. LISINOPRIL. [Suspect]
     Active Substance: LISINOPRIL
     Indication: BLOOD PRESSURE ABNORMAL
     Route: 048
     Dates: start: 2008
  7. CRESTOR [Suspect]
     Active Substance: ROSUVASTATIN CALCIUM
     Indication: BLOOD CHOLESTEROL INCREASED
     Route: 048
     Dates: start: 2008
  8. FISH OIL [Concomitant]
     Active Substance: FISH OIL
  9. VITAMIN D3 [Concomitant]
     Active Substance: CHOLECALCIFEROL

REACTIONS (9)
  - Blood cholesterol increased [Unknown]
  - Pain in extremity [Unknown]
  - Intentional product misuse [Unknown]
  - Hypoaesthesia [Not Recovered/Not Resolved]
  - Arthralgia [Unknown]
  - Bursitis [Not Recovered/Not Resolved]
  - Blood triglycerides increased [Unknown]
  - Neuropathy peripheral [Unknown]
  - Thinking abnormal [Unknown]

NARRATIVE: CASE EVENT DATE: 2013
